FAERS Safety Report 4721731-X (Version None)
Quarter: 2005Q3

REPORT INFORMATION
  Report Type: 
  Country: None (occurrence: None)
  Receive Date: 20050721
  Receipt Date: 20050318
  Transmission Date: 20060218
  Serious: No
  Sender: FDA-Public Use
  Company Number: US-BRISTOL-MYERS SQUIBB COMPANY-12903704

PATIENT
  Age: 55 Year
  Sex: Female
  Weight: 57 kg

DRUGS (1)
  1. COUMADIN [Suspect]
     Indication: POSTOPERATIVE THROMBOSIS
     Dosage: 5 MG FIVE TIMES PER WEEK AND 7.5 MG TWICE WEEKLY

REACTIONS (2)
  - URINE ABNORMALITY [None]
  - URINE ODOUR ABNORMAL [None]
